FAERS Safety Report 16197555 (Version 2)
Quarter: 2019Q2

REPORT INFORMATION
  Report Type: Spontaneous
  Country: UG (occurrence: UG)
  Receive Date: 20190415
  Receipt Date: 20190416
  Transmission Date: 20190711
  Serious: Yes (Other)
  Sender: FDA-Public Use
  Company Number: UG-GLAXOSMITHKLINE-UG2019GSK060305

PATIENT
  Age: 62 Year
  Sex: Male

DRUGS (4)
  1. ZIDOVUDINE. [Suspect]
     Active Substance: ZIDOVUDINE
     Indication: HIV INFECTION
     Dosage: UNK
  2. ATAZANAVIR + RITONAVIR [Suspect]
     Active Substance: ATAZANAVIR\RITONAVIR
     Indication: HIV INFECTION
     Dosage: UNK
  3. LAMIVUDINE. [Suspect]
     Active Substance: LAMIVUDINE
     Indication: HIV INFECTION
     Dosage: UNK
  4. DONEPEZIL. [Concomitant]
     Active Substance: DONEPEZIL
     Indication: DEMENTIA
     Dosage: 2.5 MG, QD

REACTIONS (10)
  - Somnolence [Unknown]
  - Gait disturbance [Unknown]
  - Atrophy [Unknown]
  - Viral mutation identified [Unknown]
  - Encephalitis viral [Unknown]
  - Memory impairment [Unknown]
  - CSF HIV escape syndrome [Unknown]
  - Hallucination, visual [Unknown]
  - Confabulation [Unknown]
  - Intention tremor [Unknown]
